FAERS Safety Report 24428557 (Version 1)
Quarter: 2024Q4

REPORT INFORMATION
  Report Type: Spontaneous
  Country: TR (occurrence: TR)
  Receive Date: 20241011
  Receipt Date: 20241011
  Transmission Date: 20250114
  Serious: Yes (Other)
  Sender: NOVARTIS
  Company Number: TR-002147023-NVSC2024TR200041

PATIENT
  Age: 55 Year
  Sex: Male
  Weight: 91 kg

DRUGS (1)
  1. FINGOLIMOD [Suspect]
     Active Substance: FINGOLIMOD
     Indication: Multiple sclerosis
     Dosage: UNK, QD
     Route: 048
     Dates: start: 201706, end: 202405

REACTIONS (4)
  - Macular oedema [Recovered/Resolved with Sequelae]
  - Macular telangiectasia [Unknown]
  - Retinal detachment [Unknown]
  - Colour blindness [Unknown]

NARRATIVE: CASE EVENT DATE: 20240501
